FAERS Safety Report 10784819 (Version 1)
Quarter: 2015Q1

REPORT INFORMATION
  Report Type: Spontaneous
  Country: US (occurrence: US)
  Receive Date: 20150211
  Receipt Date: 20150211
  Transmission Date: 20150721
  Serious: Yes (Other)
  Sender: FDA-Public Use
  Company Number: US-GLAXOSMITHKLINE-A1086749A

PATIENT

DRUGS (2)
  1. LAMICTAL [Suspect]
     Active Substance: LAMOTRIGINE
     Indication: PRODUCT USED FOR UNKNOWN INDICATION
  2. ANTI-EPILEPTIC DRUGS [Suspect]
     Active Substance: UNSPECIFIED INGREDIENT
     Indication: EPILEPSY

REACTIONS (1)
  - Seizure [Not Recovered/Not Resolved]
